FAERS Safety Report 5849879-7 (Version None)
Quarter: 2008Q3

REPORT INFORMATION
  Report Type: 
  Country: None (occurrence: None)
  Receive Date: 20080818
  Receipt Date: 20080818
  Transmission Date: 20090109
  Serious: Yes (Hospitalization, Other)
  Sender: FDA-Public Use
  Company Number: None

PATIENT
  Age: 58 Year
  Sex: Female
  Weight: 56.6996 kg

DRUGS (1)
  1. ZOMETA [Suspect]
     Indication: OSTEOPOROSIS
     Dosage: 4 MG ONCE A YEAR IV DRIP
     Route: 041
     Dates: start: 20080712, end: 20080712

REACTIONS (9)
  - ARTHRALGIA [None]
  - ASCITES [None]
  - BLOOD COUNT ABNORMAL [None]
  - CARDIAC MURMUR [None]
  - NO THERAPEUTIC RESPONSE [None]
  - PAIN IN JAW [None]
  - PANCREATITIS ACUTE [None]
  - PANCREATITIS HAEMORRHAGIC [None]
  - PLEURAL EFFUSION [None]
